FAERS Safety Report 9631387 (Version 1)
Quarter: 2013Q4

REPORT INFORMATION
  Report Type: Spontaneous
  Country: GB (occurrence: None)
  Receive Date: 20131015
  Receipt Date: 20131015
  Transmission Date: 20140711
  Serious: Yes (Other)
  Sender: FDA-Public Use
  Company Number: AUR-APL-2013-08376

PATIENT
  Age: 45 Year
  Sex: Male

DRUGS (4)
  1. RIBAVIRIN (RIBAVIRIN) [Suspect]
     Indication: HEPATITIS C
     Route: 048
     Dates: start: 20130108
  2. INCIVO [Suspect]
     Indication: HEPATITIS C
     Dosage: (750 MG, 3 IN 1 D)
     Route: 048
     Dates: start: 20130108
  3. INTERFERON ALFA-2A [Suspect]
     Indication: HEPATITIS C
     Dosage: 1 IN 1 WK
     Route: 058
     Dates: start: 20130108
  4. PEGINTERFERON ALFA-2B (PEGINTERFERON ALFA-2B) [Concomitant]

REACTIONS (7)
  - Anaemia [None]
  - Fatigue [None]
  - Pruritus [None]
  - Rash [None]
  - Constipation [None]
  - Breath odour [None]
  - Dyspnoea exertional [None]
